FAERS Safety Report 15287032 (Version 2)
Quarter: 2018Q3

REPORT INFORMATION
  Report Type: Spontaneous
  Country: DK (occurrence: DK)
  Receive Date: 20180817
  Receipt Date: 20180817
  Transmission Date: 20181010
  Serious: Yes (Hospitalization)
  Sender: FDA-Public Use
  Company Number: DK-TEVA-2018-DK-943709

PATIENT
  Age: 63 Year
  Sex: Female
  Weight: 88 kg

DRUGS (8)
  1. QUETIAPINE ^TEVA^ [Suspect]
     Active Substance: QUETIAPINE
     Indication: BIPOLAR DISORDER
     Dosage: 12.5 MILLIGRAM DAILY;
     Route: 048
     Dates: start: 20180626, end: 20180702
  2. SEROQUEL [Suspect]
     Active Substance: QUETIAPINE FUMARATE
     Indication: HALLUCINATION
     Dates: start: 2009, end: 2010
  3. DYMISTA [Suspect]
     Active Substance: AZELASTINE HYDROCHLORIDE\FLUTICASONE PROPIONATE
     Indication: RHINITIS ALLERGIC
     Route: 045
     Dates: start: 20180530, end: 20180709
  4. CISORDINOL [Suspect]
     Active Substance: ZUCLOPENTHIXOL
     Route: 065
  5. SERTRONE [Suspect]
     Active Substance: SERTRALINE HYDROCHLORIDE
     Indication: ANXIETY
     Dosage: 75 MILLIGRAM DAILY;
     Route: 048
     Dates: start: 20180226, end: 20180622
  6. PREDNISOLON ^DLF^ [Suspect]
     Active Substance: PREDNISOLONE
     Indication: PULMONARY FUNCTION TEST
     Dosage: 37.5 MILLIGRAM DAILY;
     Route: 048
     Dates: start: 20180406, end: 20180416
  7. DYMISTA [Suspect]
     Active Substance: AZELASTINE HYDROCHLORIDE\FLUTICASONE PROPIONATE
     Route: 065
  8. CISORDINOL [Suspect]
     Active Substance: ZUCLOPENTHIXOL
     Indication: PSYCHOTIC DISORDER
     Dosage: 6 MILLIGRAM DAILY;
     Route: 048
     Dates: start: 20091209, end: 20180701

REACTIONS (7)
  - Thinking abnormal [Recovering/Resolving]
  - Suicidal ideation [Recovering/Resolving]
  - Self-injurious ideation [Recovering/Resolving]
  - Anxiety [Recovering/Resolving]
  - Hallucination, auditory [Recovering/Resolving]
  - Tachyphrenia [Recovering/Resolving]
  - Nausea [Recovering/Resolving]

NARRATIVE: CASE EVENT DATE: 20180226
